FAERS Safety Report 4656835-3 (Version None)
Quarter: 2005Q2

REPORT INFORMATION
  Report Type: 
  Country: None (occurrence: None)
  Receive Date: 20050505
  Receipt Date: 20050425
  Transmission Date: 20051028
  Serious: Yes (Hospitalization)
  Sender: FDA-Public Use
  Company Number: 03P-056-0209053-00

PATIENT
  Age: 58 Year
  Sex: Male

DRUGS (6)
  1. DEPAKOTE [Suspect]
     Indication: BIPOLAR I DISORDER
     Dosage: 500 MG, 2 IN 1 D, PER ORAL
     Route: 048
     Dates: start: 20020301, end: 20030116
  2. AMISULPRIDE [Concomitant]
  3. CYAMEMAZINE [Concomitant]
  4. CIPROFIBRATE [Concomitant]
  5. BENFLUOREX HYDROCHLORIDE [Concomitant]
  6. LIOTHYRONINE SODIUM [Concomitant]

REACTIONS (20)
  - ABNORMAL BEHAVIOUR [None]
  - AMMONIA INCREASED [None]
  - ANXIETY [None]
  - CEREBRAL ATROPHY [None]
  - COGNITIVE DISORDER [None]
  - CONFUSIONAL STATE [None]
  - DECREASED ACTIVITY [None]
  - DISEASE PROGRESSION [None]
  - DISORIENTATION [None]
  - DISTURBANCE IN ATTENTION [None]
  - DRUG INEFFECTIVE [None]
  - DYSGRAPHIA [None]
  - ELECTROENCEPHALOGRAM ABNORMAL [None]
  - EXTRAPYRAMIDAL DISORDER [None]
  - HYPERTONIA [None]
  - INCOHERENT [None]
  - MEMORY IMPAIRMENT [None]
  - METABOLIC ENCEPHALOPATHY [None]
  - PARKINSON'S DISEASE [None]
  - TREMOR [None]
